FAERS Safety Report 10136583 (Version 2)
Quarter: 2014Q2

REPORT INFORMATION
  Report Type: Spontaneous
  Country: US (occurrence: None)
  Receive Date: 20140425
  Receipt Date: 20140512
  Transmission Date: 20141212
  Serious: Yes (Congenital Anomaly, Other)
  Sender: FDA-Public Use
  Company Number: AUR-APL-2014-04926

PATIENT
  Sex: Male

DRUGS (1)
  1. BISOPROLOL [Suspect]
     Indication: HYPERTENSION
     Route: 064

REACTIONS (2)
  - Maternal drugs affecting foetus [None]
  - Hypospadias [None]
